FAERS Safety Report 9545833 (Version 1)
Quarter: 2013Q3

REPORT INFORMATION
  Report Type: Spontaneous
  Country: US (occurrence: US)
  Receive Date: 20130923
  Receipt Date: 20130923
  Transmission Date: 20140515
  Serious: Yes (Hospitalization, Other)
  Sender: FDA-Public Use
  Company Number: US-ACTAVIS-2013-16393

PATIENT
  Age: 45 Year
  Sex: Female

DRUGS (1)
  1. LEVORA (UNKNOWN) (WATSON LABORATORIES) [Suspect]
     Indication: CONTRACEPTION
     Dosage: UNK, DAILY
     Route: 048
     Dates: start: 2009

REACTIONS (3)
  - Hepatocellular carcinoma [Not Recovered/Not Resolved]
  - Liver operation [Not Recovered/Not Resolved]
  - Adenoma benign [Not Recovered/Not Resolved]
